FAERS Safety Report 15706842 (Version 7)
Quarter: 2020Q1

REPORT INFORMATION
  Report Type: Spontaneous
  Country: US (occurrence: US)
  Receive Date: 20181210
  Receipt Date: 20200213
  Transmission Date: 20200409
  Serious: No
  Sender: FDA-Public Use
  Company Number: US-ACTELION-A-US2018-183104

PATIENT
  Age: 50 Year
  Sex: Male
  Weight: 80.27 kg

DRUGS (4)
  1. REMODULIN [Concomitant]
     Active Substance: TREPROSTINIL
     Dosage: 56 NG/KG, PER MIN
  2. AMLODIPINE [Concomitant]
     Active Substance: AMLODIPINE BESYLATE
  3. REMODULIN [Concomitant]
     Active Substance: TREPROSTINIL
     Dosage: UNK
  4. OPSUMIT [Suspect]
     Active Substance: MACITENTAN
     Indication: PULMONARY ARTERIAL HYPERTENSION
     Dosage: 10 MG, QD
     Route: 048

REACTIONS (11)
  - Headache [Unknown]
  - Dermatitis contact [Unknown]
  - Joint swelling [Unknown]
  - Product dose omission [Unknown]
  - Nausea [Unknown]
  - Catheter site pain [Unknown]
  - Catheter site erythema [Not Recovered/Not Resolved]
  - Dyspnoea [Unknown]
  - Malaise [Unknown]
  - Catheter site haemorrhage [Unknown]
  - Flushing [Unknown]

NARRATIVE: CASE EVENT DATE: 201901
